FAERS Safety Report 10725646 (Version 1)
Quarter: 2015Q1

REPORT INFORMATION
  Report Type: Spontaneous
  Country: US (occurrence: None)
  Receive Date: 20150116
  Receipt Date: 20150116
  Transmission Date: 20150721
  Serious: Yes (Other)
  Sender: FDA-Public Use
  Company Number: None

PATIENT
  Age: 67 Year
  Sex: Male
  Weight: 89.9 kg

DRUGS (2)
  1. METOLAZONE. [Suspect]
     Active Substance: METOLAZONE
     Route: 048
     Dates: start: 20141128, end: 20141129
  2. BUMETANIDE. [Suspect]
     Active Substance: BUMETANIDE
     Indication: FLUID OVERLOAD
     Route: 042
     Dates: start: 20141127, end: 20141129

REACTIONS (6)
  - Acidosis [None]
  - Blood creatinine increased [None]
  - Renal tubular necrosis [None]
  - Hypotension [None]
  - Blood urea increased [None]
  - Continuous haemodiafiltration [None]

NARRATIVE: CASE EVENT DATE: 20141204
